FAERS Safety Report 5957259-9 (Version None)
Quarter: 2008Q4

REPORT INFORMATION
  Report Type: 
  Country: None (occurrence: None)
  Receive Date: 20081118
  Receipt Date: 20081105
  Transmission Date: 20090506
  Serious: Yes (Hospitalization)
  Sender: FDA-Public Use
  Company Number: US-AMGEN-US214674

PATIENT
  Sex: Male
  Weight: 69.5 kg

DRUGS (9)
  1. PANITUMUMAB [Suspect]
     Indication: COLORECTAL CANCER
     Route: 042
     Dates: start: 20070306, end: 20070306
  2. PANITUMUMAB [Suspect]
     Route: 042
     Dates: start: 20070402
  3. IRINOTECAN HYDROCHLORIDE [Suspect]
     Route: 042
     Dates: start: 20070306, end: 20070306
  4. IRINOTECAN HYDROCHLORIDE [Suspect]
     Route: 042
     Dates: start: 20070402
  5. DECADRON [Concomitant]
     Route: 048
  6. KYTRIL [Concomitant]
     Route: 048
  7. COMPAZINE [Concomitant]
     Route: 048
  8. ATROPINE W/DIPHENOXYLATE [Concomitant]
     Route: 048
  9. IMODIUM [Concomitant]
     Route: 048

REACTIONS (2)
  - DIARRHOEA [None]
  - NEUTROPENIA [None]
